FAERS Safety Report 6547909-0 (Version None)
Quarter: 2010Q1

REPORT INFORMATION
  Report Type: 
  Country: None (occurrence: None)
  Receive Date: 20100124
  Receipt Date: 20091118
  Transmission Date: 20100710
  Serious: No
  Sender: FDA-Public Use
  Company Number: US-ALEXION-A200900991

PATIENT

DRUGS (4)
  1. SOLIRIS [Suspect]
     Indication: PAROXYSMAL NOCTURNAL HAEMOGLOBINURIA
     Dosage: 600 MG, QWK
     Dates: start: 20070529, end: 20070619
  2. SOLIRIS [Suspect]
     Dosage: 900 MG, Q2WK
     Dates: start: 20070626
  3. PREDNISONE [Concomitant]
     Dosage: 10 MG, QD
     Route: 048
     Dates: end: 20091101
  4. PREDNISONE [Concomitant]
     Dosage: 20 MG, QD
     Route: 048
     Dates: start: 20091101

REACTIONS (4)
  - INFLUENZA [None]
  - JAUNDICE [None]
  - LIVER FUNCTION TEST ABNORMAL [None]
  - URINE COLOUR ABNORMAL [None]
